FAERS Safety Report 17155900 (Version 1)
Quarter: 2019Q4

REPORT INFORMATION
  Report Type: Report from Study
  Country: US (occurrence: US)
  Receive Date: 20191215
  Receipt Date: 20191215
  Transmission Date: 20200122
  Serious: Yes (Hospitalization)
  Sender: FDA-Public Use
  Company Number: US-ROCHE-2496275

PATIENT
  Age: 72 Year
  Sex: Male
  Weight: 71.6 kg

DRUGS (2)
  1. ATEZOLIZUMAB. [Suspect]
     Active Substance: ATEZOLIZUMAB
     Indication: RENAL CELL CARCINOMA
     Dosage: LAST DOSE OF ATEZOLIZUMAB ADMINISTERED PRIOR TO EVENT ONSET: 22/NOV/2019
     Route: 042
     Dates: start: 20180720
  2. BEVACIZUMAB. [Suspect]
     Active Substance: BEVACIZUMAB
     Indication: RENAL CELL CARCINOMA
     Dosage: LAST DOSE OF BEVACIZUMAB ADMINISTERED PRIOR TO EVENT ONSET: 22/NOV/2019
     Route: 042
     Dates: start: 20180720

REACTIONS (1)
  - Acute coronary syndrome [Unknown]

NARRATIVE: CASE EVENT DATE: 20191209
